FAERS Safety Report 9770333 (Version 1)
Quarter: 2013Q4

REPORT INFORMATION
  Report Type: Spontaneous
  Country: US (occurrence: US)
  Receive Date: 20131218
  Receipt Date: 20131218
  Transmission Date: 20140711
  Serious: Yes (Hospitalization)
  Sender: FDA-Public Use
  Company Number: US-AMGEN-USASP2013088326

PATIENT
  Age: 55 Year
  Sex: Male

DRUGS (2)
  1. ENBREL [Suspect]
     Indication: RHEUMATOID ARTHRITIS
     Dosage: 50 MG, QWK
     Route: 065
     Dates: start: 1999, end: 201304
  2. PREDNISONE [Suspect]
     Indication: PRODUCT USED FOR UNKNOWN INDICATION
     Dosage: UNK
     Route: 065

REACTIONS (9)
  - Fall [Recovered/Resolved]
  - Arthralgia [Not Recovered/Not Resolved]
  - Joint destruction [Not Recovered/Not Resolved]
  - Skin atrophy [Recovered/Resolved]
  - Impaired healing [Recovered/Resolved]
  - Infection [Recovered/Resolved]
  - Visual impairment [Recovered/Resolved]
  - Pain [Not Recovered/Not Resolved]
  - Ossicle disorder [Not Recovered/Not Resolved]
